FAERS Safety Report 9193415 (Version 2)
Quarter: 2013Q4

REPORT INFORMATION
  Report Type: Report from Study
  Country: BR (occurrence: BR)
  Receive Date: 20130327
  Receipt Date: 20131017
  Transmission Date: 20140711
  Serious: Yes (Hospitalization, Disabling, Other)
  Sender: FDA-Public Use
  Company Number: BR-BAYER-2013-038798

PATIENT
  Age: 51 Year
  Sex: Female

DRUGS (2)
  1. BETAFERON [Suspect]
     Indication: MULTIPLE SCLEROSIS
     Dosage: 1 ML, QOD
     Route: 058
     Dates: start: 2006
  2. ENALAPRIL [Concomitant]
     Indication: HYPERTENSION
     Dosage: 2 DF, QD
     Route: 048
     Dates: start: 2009

REACTIONS (11)
  - Multiple sclerosis relapse [Recovered/Resolved]
  - Dizziness [Recovered/Resolved]
  - Multiple sclerosis relapse [Recovering/Resolving]
  - Spinal disorder [Recovering/Resolving]
  - Hypoaesthesia [Recovering/Resolving]
  - Abasia [Recovering/Resolving]
  - Spinal pain [Recovering/Resolving]
  - Muscular weakness [Recovering/Resolving]
  - Nephrolithiasis [Recovering/Resolving]
  - Flank pain [Recovering/Resolving]
  - Musculoskeletal stiffness [Recovering/Resolving]
